FAERS Safety Report 4393145-6 (Version None)
Quarter: 2004Q3

REPORT INFORMATION
  Report Type: 
  Country: None (occurrence: None)
  Receive Date: 20040708
  Receipt Date: 20040625
  Transmission Date: 20050211
  Serious: Yes (Hospitalization)
  Sender: FDA-Public Use
  Company Number: PHNU2004DE02275

PATIENT
  Sex: Male

DRUGS (13)
  1. LEPONEX / CLOZARIL (CLOZAPINE) [Suspect]
     Indication: SCHIZOPHRENIA
     Dosage: 12.5MG/DAY
     Route: 048
     Dates: start: 20040202, end: 20040202
  2. LEPONEX / CLOZARIL (CLOZAPINE) [Suspect]
     Dosage: 100MG/DAY
     Route: 048
     Dates: start: 20040203, end: 20040203
  3. LEPONEX / CLOZARIL (CLOZAPINE) [Suspect]
     Dosage: 150MG/DAY
     Route: 048
     Dates: start: 20040204, end: 20040204
  4. LEPONEX / CLOZARIL (CLOZAPINE) [Suspect]
     Dosage: 200MG/DAY
     Route: 048
     Dates: start: 20040205, end: 20040205
  5. LEPONEX / CLOZARIL (CLOZAPINE) [Suspect]
     Dosage: 250MG/DAY
     Route: 048
     Dates: start: 20040206, end: 20040208
  6. LEPONEX / CLOZARIL (CLOZAPINE) [Suspect]
     Dosage: 300MG/DAY
     Route: 048
     Dates: start: 20040209, end: 20040210
  7. LEPONEX / CLOZARIL (CLOZAPINE) [Suspect]
     Dosage: 350MG/DAY
     Route: 048
     Dates: start: 20040211, end: 20040211
  8. LEPONEX / CLOZARIL (CLOZAPINE) [Suspect]
     Dosage: 400MG/DAY
     Route: 048
     Dates: start: 20040212, end: 20040219
  9. LEPONEX / CLOZARIL (CLOZAPINE) [Suspect]
     Dosage: 450MG/DAY
     Route: 048
     Dates: start: 20040220, end: 20040226
  10. ATOSIL [Concomitant]
     Dosage: 50MG/DAY
     Route: 048
     Dates: start: 20040202, end: 20040202
  11. ATOSIL [Concomitant]
     Dosage: 150MG/DAY
     Route: 048
     Dates: start: 20040203, end: 20040223
  12. ATOSIL [Concomitant]
     Dosage: 100MG/DAY
     Dates: start: 20040224, end: 20040224
  13. ATOSIL [Concomitant]
     Dosage: 50MG/DAY
     Route: 048
     Dates: start: 20040225, end: 20040225

REACTIONS (4)
  - BLOOD AMYLASE INCREASED [None]
  - C-REACTIVE PROTEIN INCREASED [None]
  - GAMMA-GLUTAMYLTRANSFERASE INCREASED [None]
  - LIPASE INCREASED [None]
